FAERS Safety Report 9928498 (Version 1)
Quarter: 2014Q1

REPORT INFORMATION
  Report Type: Spontaneous
  Country: US (occurrence: None)
  Receive Date: 20140224
  Receipt Date: 20140224
  Transmission Date: 20141002
  Serious: Yes (Death)
  Sender: FDA-Public Use
  Company Number: NL01PV14.35284

PATIENT
  Age: 58 Year
  Sex: Male

DRUGS (6)
  1. UNKNOWN (ZOLPIDEM) TABLET [Suspect]
  2. HEROIN (DIAMORPHINE) (DIAMORPHINE) [Suspect]
  3. TRAZODONE (TRAZODONE) [Suspect]
  4. SERTRALINE (SERTRALINE) [Suspect]
  5. MIRTAZAPINE (MIRTAZAPINE) [Suspect]
  6. CODEINE (CODEINE) [Suspect]

REACTIONS (1)
  - Drug abuse [None]
